FAERS Safety Report 8102529-1 (Version None)
Quarter: 2012Q1

REPORT INFORMATION
  Report Type: 
  Country: None (occurrence: None)
  Receive Date: 20120201
  Receipt Date: 20120123
  Transmission Date: 20120608
  Serious: Yes (Hospitalization)
  Sender: FDA-Public Use
  Company Number: US-BAYER-2011-095401

PATIENT
  Age: 26 Year
  Sex: Female
  Weight: 79 kg

DRUGS (8)
  1. METRONIDAZOLE [Concomitant]
     Indication: VAGINAL INFECTION
     Dosage: 500 MG, UNK
  2. ZOLPIDEM [Concomitant]
     Indication: INSOMNIA
     Dosage: 10 MG, UNK
     Dates: start: 20091101
  3. YAZ [Suspect]
     Indication: MENSTRUAL CYCLE MANAGEMENT
     Dosage: UNK
     Dates: start: 20100501, end: 20100701
  4. METHYLPREDNISOLONE [Concomitant]
     Indication: PRODUCT USED FOR UNKNOWN INDICATION
     Dosage: 4 MG, UNK
  5. SERTRALINE HYDROCHLORIDE [Concomitant]
     Indication: STRESS
  6. FLEXERIL [Concomitant]
     Indication: PRODUCT USED FOR UNKNOWN INDICATION
     Dosage: 10 MG, UNK
  7. NITROFURANTOIN [Concomitant]
     Indication: URINARY TRACT INFECTION
  8. SERTRALINE HYDROCHLORIDE [Concomitant]
     Indication: DEPRESSION
     Dosage: 100 MG, UNK
     Dates: start: 20091101

REACTIONS (2)
  - INJURY [None]
  - PULMONARY EMBOLISM [None]
